FAERS Safety Report 20795349 (Version 2)
Quarter: 2022Q3

REPORT INFORMATION
  Report Type: Spontaneous
  Country: JP (occurrence: JP)
  Receive Date: 20220506
  Receipt Date: 20220714
  Transmission Date: 20221026
  Serious: Yes (Other)
  Sender: FDA-Public Use
  Company Number: JP-GLAXOSMITHKLINE-JPCH2022JPN015185

PATIENT

DRUGS (1)
  1. DICLOFENAC SODIUM [Suspect]
     Active Substance: DICLOFENAC SODIUM
     Indication: Analgesic therapy
     Dosage: UNK
     Route: 050

REACTIONS (3)
  - Peptic ulcer [Unknown]
  - Aspirin-exacerbated respiratory disease [Unknown]
  - Therapeutic response increased [Unknown]
